FAERS Safety Report 6179303-9 (Version None)
Quarter: 2009Q2

REPORT INFORMATION
  Report Type: 
  Country: None (occurrence: None)
  Receive Date: 20090430
  Receipt Date: 20090328
  Transmission Date: 20091009
  Serious: No
  Sender: FDA-Public Use
  Company Number: 2009004168

PATIENT
  Sex: Female

DRUGS (1)
  1. FENTORA [Suspect]
     Indication: HEADACHE
     Dosage: BU
     Route: 002

REACTIONS (1)
  - MEDICATION ERROR [None]
